FAERS Safety Report 5522254-0 (Version None)
Quarter: 2007Q4

REPORT INFORMATION
  Report Type: 
  Country: None (occurrence: None)
  Receive Date: 20071120
  Receipt Date: 20071113
  Transmission Date: 20080405
  Serious: Yes (Hospitalization, Disabling, Other)
  Sender: FDA-Public Use
  Company Number: PHHO2007HR06986

PATIENT
  Age: 57 Year
  Sex: Female
  Weight: 75.5 kg

DRUGS (9)
  1. SANDIMMUNE [Suspect]
     Indication: RENAL TRANSPLANT
     Dosage: 2000 MG/DAY
     Route: 048
     Dates: start: 20070217
  2. CELLCEPT [Concomitant]
     Indication: RENAL TRANSPLANT
     Dosage: 2 G
     Dates: start: 20070217
  3. DECORTIN [Concomitant]
     Indication: RENAL TRANSPLANT
     Dosage: 20 MG
     Dates: start: 20070217
  4. NITROFURANTOIN [Concomitant]
     Indication: HYPERTENSION
     Dosage: 100 MG
     Route: 048
     Dates: start: 20050101
  5. LACIDIPINE [Concomitant]
     Indication: HYPERTENSION
     Dosage: 2 MG
     Dates: start: 20050101
  6. FUROSEMIDE [Concomitant]
     Indication: DIURETIC THERAPY
     Dosage: 40 MG
     Dates: start: 20050101
  7. CONTROLOC [Concomitant]
     Indication: DYSPEPSIA
     Dosage: 20 MG
     Dates: start: 20050101
  8. LESCOL XL [Suspect]
     Dosage: 80 MG, QD
     Route: 048
     Dates: end: 20070412
  9. CORTEF [Concomitant]

REACTIONS (10)
  - ALANINE AMINOTRANSFERASE INCREASED [None]
  - ASPARTATE AMINOTRANSFERASE INCREASED [None]
  - BLOOD CREATINE PHOSPHOKINASE INCREASED [None]
  - CYTOMEGALOVIRUS INFECTION [None]
  - DIABETES MELLITUS [None]
  - DRUG INTERACTION [None]
  - LIVER INJURY [None]
  - MOVEMENT DISORDER [None]
  - MUSCULAR WEAKNESS [None]
  - RHABDOMYOLYSIS [None]
